FAERS Safety Report 14492198 (Version 3)
Quarter: 2019Q1

REPORT INFORMATION
  Report Type: Report from Study
  Country: JP (occurrence: JP)
  Receive Date: 20180206
  Receipt Date: 20190314
  Transmission Date: 20190417
  Serious: Yes (Hospitalization, Other)
  Sender: FDA-Public Use
  Company Number: JP-AMGEN-JPNSP2018014697

PATIENT
  Age: 80 Year
  Sex: Male
  Weight: 65 kg

DRUGS (5)
  1. OXAROL [Concomitant]
     Active Substance: MAXACALCITOL
     Dosage: 2.5 MICROGRAM, QD (2.5 UG, EVERYDAY)
     Route: 042
  2. FOSRENOL [Concomitant]
     Active Substance: LANTHANUM CARBONATE
     Indication: HYPERPHOSPHATAEMIA
     Dosage: 500 MILLIGRAM, QD ((500 MG, EVERYDAY)
     Route: 048
     Dates: end: 20180120
  3. RIONA [Concomitant]
     Active Substance: FERRIC CITRATE ANHYDROUS
     Indication: HYPERPHOSPHATAEMIA
     Dosage: 1000 MILLIGRAM, QD (1000 MG, EVERYDAY)
     Route: 048
     Dates: end: 20180120
  4. CALTAN [Concomitant]
     Active Substance: CALCIUM CARBONATE
     Dosage: 2000 MILLIGRAM, QD (2000 MG, EVERYDAY)
     Route: 048
  5. ETELCALCETIDE [Suspect]
     Active Substance: ETELCALCETIDE
     Indication: HYPERPARATHYROIDISM SECONDARY
     Dosage: 5 MG, 3 TIMES/WK (5 MG, Q56H)
     Route: 042
     Dates: start: 20171229

REACTIONS (1)
  - Diverticulum intestinal haemorrhagic [Recovered/Resolved]

NARRATIVE: CASE EVENT DATE: 20180120
